FAERS Safety Report 22165480 (Version 1)
Quarter: 2023Q2

REPORT INFORMATION
  Report Type: Spontaneous
  Country: US (occurrence: US)
  Receive Date: 20230403
  Receipt Date: 20230403
  Transmission Date: 20230722
  Serious: No
  Sender: FDA-Public Use
  Company Number: US-AMGEN-USASP2023050827

PATIENT
  Age: 59 Year
  Sex: Female

DRUGS (1)
  1. PROLIA [Suspect]
     Active Substance: DENOSUMAB
     Indication: Osteoporosis
     Dosage: UNK, Q6MO
     Route: 058
     Dates: start: 20150910, end: 20210325

REACTIONS (11)
  - Milk allergy [Not Recovered/Not Resolved]
  - Allergy to animal [Unknown]
  - Weight bearing difficulty [Recovered/Resolved]
  - Dermatitis diaper [Recovered/Resolved]
  - Eating disorder [Recovered/Resolved]
  - Diarrhoea [Recovered/Resolved]
  - Muscle spasms [Recovered/Resolved]
  - Dyspepsia [Recovered/Resolved]
  - Abdominal discomfort [Recovered/Resolved]
  - Dairy intolerance [Recovered/Resolved]
  - Dysphagia [Recovered/Resolved]
